FAERS Safety Report 10010923 (Version 1)
Quarter: 2014Q1

REPORT INFORMATION
  Report Type: Spontaneous
  Country: US (occurrence: US)
  Receive Date: 20140314
  Receipt Date: 20140314
  Transmission Date: 20141002
  Serious: No
  Sender: FDA-Public Use
  Company Number: US-DRREDDYS-USA/USA/13/0030160

PATIENT
  Age: 46 Year
  Sex: Male
  Weight: 99.88 kg

DRUGS (1)
  1. CETIRIZINE [Suspect]
     Indication: HYPERSENSITIVITY
     Route: 048
     Dates: start: 20130603, end: 20130610

REACTIONS (1)
  - Blood pressure increased [Unknown]
